FAERS Safety Report 11810615 (Version 3)
Quarter: 2016Q1

REPORT INFORMATION
  Report Type: Report from Study
  Country: US (occurrence: US)
  Receive Date: 20151208
  Receipt Date: 20160218
  Transmission Date: 20160525
  Serious: Yes (Hospitalization, Other)
  Sender: FDA-Public Use
  Company Number: US-TAKEDA-2015MPI007865

PATIENT
  Age: 36 Year
  Sex: Male

DRUGS (3)
  1. VELCADE [Suspect]
     Active Substance: BORTEZOMIB
     Indication: PLASMA CELL MYELOMA
     Dosage: 3.2 MG, UNK
     Route: 058
     Dates: start: 20150430, end: 20151005
  2. DEXAMETHASONE. [Concomitant]
     Active Substance: DEXAMETHASONE
     Dosage: 20 MG, UNK
     Route: 065
     Dates: end: 20151002
  3. VELCADE [Suspect]
     Active Substance: BORTEZOMIB
     Dosage: 3 UNK, UNK
     Route: 058
     Dates: start: 20151020

REACTIONS (3)
  - Plasma cell leukaemia [Unknown]
  - Overdose [Unknown]
  - Plasma cell myeloma [Not Recovered/Not Resolved]

NARRATIVE: CASE EVENT DATE: 20151019
